FAERS Safety Report 21948205 (Version 1)
Quarter: 2023Q1

REPORT INFORMATION
  Report Type: Spontaneous
  Country: US (occurrence: US)
  Receive Date: 20230203
  Receipt Date: 20230203
  Transmission Date: 20230417
  Serious: Yes (Other)
  Sender: FDA-Public Use
  Company Number: US-BEH-2022151806

PATIENT
  Sex: Female

DRUGS (5)
  1. PRIVIGEN [Suspect]
     Active Substance: HUMAN IMMUNOGLOBULIN G
     Indication: Hypogammaglobulinaemia
     Dosage: 20 GRAM
     Route: 042
     Dates: start: 20220509, end: 20220509
  2. PRIVIGEN [Suspect]
     Active Substance: HUMAN IMMUNOGLOBULIN G
     Dosage: 20 GRAM
     Route: 042
     Dates: start: 20220513, end: 20220513
  3. BENADRYL [Concomitant]
     Active Substance: DIPHENHYDRAMINE HYDROCHLORIDE
     Indication: Premedication
     Dosage: 50 MILLIGRAM
     Route: 042
     Dates: start: 20220513
  4. SOLU-MEDROL [Concomitant]
     Active Substance: METHYLPREDNISOLONE SODIUM SUCCINATE
     Indication: Premedication
     Dosage: 125 MILLIGRAM
     Route: 042
     Dates: start: 20220513
  5. TYLENOL [Concomitant]
     Active Substance: ACETAMINOPHEN
     Indication: Premedication
     Dosage: UNK
     Route: 048
     Dates: start: 20220513

REACTIONS (8)
  - Chest discomfort [Recovered/Resolved]
  - Throat clearing [Recovered/Resolved]
  - Dyspnoea exertional [Recovered/Resolved]
  - Incorrect dose administered [Recovered/Resolved]
  - Pharyngeal swelling [Recovered/Resolved]
  - Throat tightness [Recovering/Resolving]
  - Cough [Recovering/Resolving]
  - Throat clearing [Recovering/Resolving]

NARRATIVE: CASE EVENT DATE: 20220509
